FAERS Safety Report 26207357 (Version 1)
Quarter: 2025Q4

REPORT INFORMATION
  Report Type: Spontaneous
  Country: CN (occurrence: CN)
  Receive Date: 20251229
  Receipt Date: 20251229
  Transmission Date: 20260117
  Serious: Yes (Hospitalization, Other)
  Sender: OCTAPHARMA
  Company Number: CN-OCTA-2025001196

PATIENT
  Age: 66 Year
  Sex: Male
  Weight: 68 kg

DRUGS (6)
  1. ALBUMIN HUMAN [Suspect]
     Active Substance: ALBUMIN HUMAN
     Indication: Hypoproteinaemia
     Route: 042
     Dates: start: 20251206, end: 20251216
  2. HEPARIN SODIUM [Suspect]
     Active Substance: HEPARIN SODIUM
     Indication: Thrombosis prophylaxis
     Route: 058
     Dates: start: 20251205, end: 20251216
  3. HEPARIN SODIUM [Suspect]
     Active Substance: HEPARIN SODIUM
     Route: 058
     Dates: start: 20251217, end: 20251218
  4. TIGECYCLINE [Suspect]
     Active Substance: TIGECYCLINE
     Indication: Pyelonephritis acute
     Route: 042
     Dates: start: 20251205, end: 20251216
  5. PIPERACILLIN AND TAZOBACTAM [Concomitant]
     Active Substance: PIPERACILLIN SODIUM\TAZOBACTAM SODIUM
     Indication: Pyelonephritis acute
     Route: 042
     Dates: start: 20251203, end: 20251204
  6. MEROPENEM [Concomitant]
     Active Substance: MEROPENEM
     Indication: Infection
     Route: 042
     Dates: start: 20251204, end: 20251205

REACTIONS (2)
  - Upper gastrointestinal haemorrhage [Recovering/Resolving]
  - Coagulation time prolonged [Recovering/Resolving]

NARRATIVE: CASE EVENT DATE: 20251215
